FAERS Safety Report 11640839 (Version 1)
Quarter: 2015Q4

REPORT INFORMATION
  Report Type: Spontaneous
  Country: US (occurrence: None)
  Receive Date: 20151016
  Receipt Date: 20151016
  Transmission Date: 20160304
  Serious: Yes (Hospitalization)
  Sender: FDA-Public Use
  Company Number: None

PATIENT
  Age: 41 Year
  Sex: Female
  Weight: 50.8 kg

DRUGS (1)
  1. BACTRIM [Suspect]
     Active Substance: SULFAMETHOXAZOLE\TRIMETHOPRIM
     Indication: CELLULITIS STAPHYLOCOCCAL
     Dates: start: 201503

REACTIONS (9)
  - Toxic epidermal necrolysis [None]
  - Chills [None]
  - Dysuria [None]
  - Nausea [None]
  - Vomiting [None]
  - Pain of skin [None]
  - Erythema [None]
  - Pyrexia [None]
  - Odynophagia [None]

NARRATIVE: CASE EVENT DATE: 20150320
